FAERS Safety Report 18907215 (Version 2)
Quarter: 2021Q1

REPORT INFORMATION
  Report Type: Report from Study
  Country: None (occurrence: US)
  Receive Date: 20210218
  Receipt Date: 20210225
  Transmission Date: 20210420
  Serious: Yes (Other)
  Sender: FDA-Public Use
  Company Number: US-ABBVIE-21K-163-3771462-00

PATIENT
  Sex: Female

DRUGS (3)
  1. HUMIRA [Suspect]
     Active Substance: ADALIMUMAB
     Indication: CROHN^S DISEASE
     Route: 058
  2. HUMIRA [Suspect]
     Active Substance: ADALIMUMAB
     Indication: CROHN^S DISEASE
     Dosage: CITRATE FREE
     Route: 058
  3. HUMIRA [Suspect]
     Active Substance: ADALIMUMAB
     Dosage: CITRATE FREE
     Route: 058

REACTIONS (9)
  - Umbilical haemorrhage [Unknown]
  - Illness [Unknown]
  - Ear disorder [Unknown]
  - Purulent discharge [Unknown]
  - Umbilical erythema [Unknown]
  - Feeding disorder [Unknown]
  - Unevaluable event [Unknown]
  - Lymphadenopathy [Unknown]
  - Psoriasis [Unknown]
